FAERS Safety Report 19959244 (Version 1)
Quarter: 2021Q4

REPORT INFORMATION
  Report Type: Spontaneous
  Country: US (occurrence: US)
  Receive Date: 20211013
  Receipt Date: 20211013
  Transmission Date: 20220303
  Serious: No
  Sender: FDA-Public Use
  Company Number: None

PATIENT
  Sex: Female

DRUGS (1)
  1. OTEZLA [Suspect]
     Active Substance: APREMILAST
     Indication: Psoriatic arthropathy
     Dosage: ?          OTHER STRENGTH:10/20/30M;
     Route: 048
     Dates: start: 202109, end: 202110

REACTIONS (2)
  - Depressed mood [None]
  - Depression [None]
